FAERS Safety Report 24996270 (Version 1)
Quarter: 2025Q1

REPORT INFORMATION
  Report Type: Spontaneous
  Country: US (occurrence: US)
  Receive Date: 20250221
  Receipt Date: 20250221
  Transmission Date: 20250409
  Serious: No
  Sender: Jubilant Radiopharma
  Company Number: US-JUBILANT RADIOPHARMA-2025US000001

PATIENT

DRUGS (1)
  1. TECHNETIUM TC 99M MERTIATIDE [Suspect]
     Active Substance: BETIATIDE
     Indication: Renal scan
     Dates: start: 20250204, end: 20250204

REACTIONS (2)
  - Drug ineffective [None]
  - Radioisotope uptake increased [None]

NARRATIVE: CASE EVENT DATE: 20250204
